FAERS Safety Report 12555741 (Version 1)
Quarter: 2016Q3

REPORT INFORMATION
  Report Type: Spontaneous
  Country: GB (occurrence: GB)
  Receive Date: 20160714
  Receipt Date: 20160714
  Transmission Date: 20161109
  Serious: Yes (Other)
  Sender: FDA-Public Use
  Company Number: GB-TEVA-674244ACC

PATIENT
  Age: 81 Year
  Sex: Male
  Weight: 98 kg

DRUGS (2)
  1. ERYTHROMYCIN. [Suspect]
     Active Substance: ERYTHROMYCIN
     Dates: start: 20160613
  2. DIAZEPAM. [Concomitant]
     Active Substance: DIAZEPAM
     Dosage: TAKE THREE TIMES DAILY.
     Dates: start: 20160509, end: 20160518

REACTIONS (1)
  - Chest pain [Recovered/Resolved]

NARRATIVE: CASE EVENT DATE: 20160623
